FAERS Safety Report 8785883 (Version 3)
Quarter: 2012Q4

REPORT INFORMATION
  Report Type: 
  Country: US (occurrence: US)
  Receive Date: 20120914
  Receipt Date: 20121210
  Transmission Date: 20130627
  Serious: Yes (Death)
  Sender: FDA-Public Use
  Company Number: US-ROCHE-1126738

PATIENT
  Sex: Male

DRUGS (2)
  1. AVASTIN [Suspect]
     Indication: COLON CANCER METASTATIC
     Route: 050
     Dates: start: 200506, end: 200509
  2. CAPECITABINE [Concomitant]
     Route: 065
     Dates: start: 200509

REACTIONS (2)
  - Death [Fatal]
  - Disease progression [Unknown]
